FAERS Safety Report 14679714 (Version 3)
Quarter: 2018Q4

REPORT INFORMATION
  Report Type: Report from Study
  Country: CA (occurrence: CA)
  Receive Date: 20180326
  Receipt Date: 20181018
  Transmission Date: 20190204
  Serious: Yes (Other)
  Sender: FDA-Public Use
  Company Number: CA-SA-2017SA015988

PATIENT
  Age: 65 Year
  Sex: Male

DRUGS (14)
  1. RANITIDINE. [Concomitant]
     Active Substance: RANITIDINE
     Indication: PREMEDICATION
     Dosage: 150 MG,UNK
     Route: 048
     Dates: start: 20170125, end: 20170127
  2. FAMPYRA [Concomitant]
     Active Substance: DALFAMPRIDINE
     Dosage: UNK UNK,UNK
     Route: 065
  3. BENADRYL [Concomitant]
     Active Substance: DIPHENHYDRAMINE HYDROCHLORIDE
     Indication: PREMEDICATION
     Dosage: 50 MG,UNK
     Route: 065
     Dates: start: 20170125, end: 20170127
  4. REACTINE [CETIRIZINE HYDROCHLORIDE] [Concomitant]
     Active Substance: CETIRIZINE HYDROCHLORIDE
     Indication: PREMEDICATION
     Dosage: 1 DF,UNK
     Route: 048
     Dates: start: 20170125
  5. PARACETAMOL [Concomitant]
     Active Substance: ACETAMINOPHEN
     Indication: PREMEDICATION
     Dosage: 500 MG,UNK
     Route: 048
     Dates: start: 20170125, end: 20170127
  6. ASA [Concomitant]
     Active Substance: ASPIRIN
     Dosage: UNK UNK,UNK
     Route: 065
  7. MODAFINIL. [Concomitant]
     Active Substance: MODAFINIL
     Dosage: UNK UNK,UNK
     Route: 065
  8. SOLU-MEDROL [Concomitant]
     Active Substance: METHYLPREDNISOLONE SODIUM SUCCINATE
     Indication: PREMEDICATION
     Dosage: 1 G,UNK
     Route: 042
     Dates: start: 20170125, end: 20170127
  9. ACICLOVIR [Concomitant]
     Active Substance: ACYCLOVIR
     Indication: PREMEDICATION
     Dosage: 200 MG,BID
     Route: 048
     Dates: start: 20170125
  10. MYRBETRIQ [Concomitant]
     Active Substance: MIRABEGRON
     Dosage: UNK UNK,UNK
     Route: 065
  11. JAMP K CITRATE [Concomitant]
     Dosage: 10 MEQ, TID
  12. ALEMTUZUMAB [Suspect]
     Active Substance: ALEMTUZUMAB
     Indication: RELAPSING-REMITTING MULTIPLE SCLEROSIS
     Dosage: 12 MG,QD
     Route: 041
     Dates: start: 20170125, end: 20170127
  13. GABAPENTIN. [Concomitant]
     Active Substance: GABAPENTIN
     Dosage: UNK UNK,UNK
     Route: 065
  14. BACLOFEN. [Concomitant]
     Active Substance: BACLOFEN
     Dosage: 10 MG
     Route: 048

REACTIONS (39)
  - Haematocrit decreased [Recovered/Resolved]
  - Neutrophil count increased [Recovered/Resolved]
  - White blood cells urine positive [Not Recovered/Not Resolved]
  - Lymphocyte percentage decreased [Not Recovered/Not Resolved]
  - Genital disorder male [Not Recovered/Not Resolved]
  - Urinary casts [Not Recovered/Not Resolved]
  - Neutrophil percentage increased [Not Recovered/Not Resolved]
  - Red blood cells urine positive [Not Recovered/Not Resolved]
  - Red cell distribution width increased [Not Recovered/Not Resolved]
  - Granulocyte count increased [Recovered/Resolved]
  - Headache [Recovered/Resolved]
  - Urinary tract infection [Not Recovered/Not Resolved]
  - Nephrolithiasis [Not Recovered/Not Resolved]
  - Glucose urine present [Not Recovered/Not Resolved]
  - Glomerular filtration rate decreased [Recovered/Resolved]
  - Urine abnormality [Recovered/Resolved]
  - Monocyte percentage increased [Recovered/Resolved]
  - Blood test abnormal [Recovered/Resolved]
  - Flushing [Recovered/Resolved]
  - Urine transitional cells present [Unknown]
  - Haemoglobin decreased [Recovered/Resolved]
  - White blood cells urine positive [Not Recovered/Not Resolved]
  - Nitrite urine present [Not Recovered/Not Resolved]
  - Blood pressure increased [Recovered/Resolved]
  - Insomnia [Recovering/Resolving]
  - Flatulence [Recovered/Resolved]
  - Urine analysis abnormal [Not Recovered/Not Resolved]
  - Crystal urine present [Not Recovered/Not Resolved]
  - Diarrhoea [Recovered/Resolved]
  - Lipaemic index score [Recovered/Resolved]
  - Mean cell haemoglobin concentration decreased [Not Recovered/Not Resolved]
  - Bacterial test positive [Not Recovered/Not Resolved]
  - Blood creatinine increased [Recovered/Resolved]
  - Red blood cell count decreased [Recovered/Resolved]
  - Blood urine present [Not Recovered/Not Resolved]
  - Protein urine present [Not Recovered/Not Resolved]
  - Pollakiuria [Recovering/Resolving]
  - Granulocyte percentage [Recovered/Resolved]
  - Lymphocyte count decreased [Not Recovered/Not Resolved]

NARRATIVE: CASE EVENT DATE: 20170125
